FAERS Safety Report 6756338-6 (Version None)
Quarter: 2010Q2

REPORT INFORMATION
  Report Type: 
  Country: None (occurrence: None)
  Receive Date: 20100604
  Receipt Date: 20100527
  Transmission Date: 20101027
  Serious: Yes (Hospitalization)
  Sender: FDA-Public Use
  Company Number: B0658813A

PATIENT
  Sex: Male

DRUGS (7)
  1. NIQUITIN [Suspect]
     Dosage: 1PAT PER DAY
     Route: 062
     Dates: start: 20100331, end: 20100409
  2. PERINDOPRIL [Concomitant]
     Dosage: 8MG PER DAY
     Route: 065
     Dates: start: 20100331, end: 20100409
  3. BISOPROLOL FUMARATE [Concomitant]
     Route: 065
     Dates: start: 20100331
  4. IMOVANE [Concomitant]
     Dosage: 3.75MG PER DAY
     Route: 065
     Dates: start: 20100331, end: 20100409
  5. KARDEGIC [Concomitant]
     Route: 065
     Dates: start: 20100331
  6. PLAVIX [Concomitant]
     Dosage: 75MG PER DAY
     Route: 065
     Dates: start: 20100331, end: 20100409
  7. TAHOR [Concomitant]
     Route: 065
     Dates: start: 20100331

REACTIONS (2)
  - PRURITUS [None]
  - URTICARIA [None]
